FAERS Safety Report 19814388 (Version 1)
Quarter: 2021Q3

REPORT INFORMATION
  Report Type: Spontaneous
  Country: US (occurrence: US)
  Receive Date: 20210909
  Receipt Date: 20210909
  Transmission Date: 20211014
  Serious: No
  Sender: FDA-Public Use
  Company Number: US-ASTRAZENECA-2021A694581

PATIENT
  Sex: Female
  Weight: 53.5 kg

DRUGS (2)
  1. BRILINTA [Suspect]
     Active Substance: TICAGRELOR
     Route: 048
  2. BRILINTA [Suspect]
     Active Substance: TICAGRELOR
     Route: 048
     Dates: start: 202106

REACTIONS (4)
  - Pharyngeal swelling [Unknown]
  - Tongue discolouration [Unknown]
  - Lip swelling [Unknown]
  - Pain in extremity [Unknown]
